FAERS Safety Report 25476639 (Version 1)
Quarter: 2025Q2

REPORT INFORMATION
  Report Type: Spontaneous
  Country: US (occurrence: US)
  Receive Date: 20250625
  Receipt Date: 20250625
  Transmission Date: 20250716
  Serious: Yes (Other)
  Sender: DBL GROUP
  Company Number: US-DBL Pharmaceuticals, Inc.-2179340

PATIENT

DRUGS (1)
  1. METHOCARBAMOL [Suspect]
     Active Substance: METHOCARBAMOL
     Indication: Product used for unknown indication

REACTIONS (3)
  - Cardiac flutter [Unknown]
  - Hypersomnia [Unknown]
  - Palpitations [Unknown]
